FAERS Safety Report 10062515 (Version 1)
Quarter: 2014Q2

REPORT INFORMATION
  Report Type: Report from Study
  Country: UG (occurrence: UG)
  Receive Date: 20140407
  Receipt Date: 20140407
  Transmission Date: 20141212
  Serious: Yes (Death)
  Sender: FDA-Public Use
  Company Number: UG-009507513-1404GBR003644

PATIENT
  Sex: Female

DRUGS (10)
  1. RALTEGRAVIR POTASSIUM [Suspect]
     Indication: HIV INFECTION
     Dosage: UNK
     Dates: start: 20140313, end: 20140322
  2. EFAVIRENZ [Suspect]
     Indication: HIV INFECTION
     Dosage: UNK
     Dates: start: 20140313, end: 20140322
  3. TENOFOVIR [Suspect]
     Dosage: UNK
     Dates: start: 20140313, end: 20140322
  4. EMTRICITABINE [Suspect]
     Dosage: UNK
     Dates: start: 20140313, end: 20140322
  5. SEPTRIN [Suspect]
     Dosage: UNK
     Dates: start: 20140306, end: 20140322
  6. AUGMENTIN [Suspect]
     Dosage: UNK
     Dates: start: 20140306, end: 20140311
  7. FLUCONAZOLE [Suspect]
     Dosage: UNK
     Dates: start: 20140312, end: 20140322
  8. AZITHROMYCIN [Suspect]
     Dosage: UNK
     Dates: start: 20140313, end: 20140315
  9. ACETAMINOPHEN [Suspect]
     Dosage: UNK
     Dates: start: 20140313, end: 20140315
  10. NUTRITIONAL SUPPLEMENTS [Suspect]
     Dosage: UNK
     Dates: start: 20140313, end: 20140322

REACTIONS (2)
  - Death [Fatal]
  - Malnutrition [Fatal]
